FAERS Safety Report 4534864-8 (Version None)
Quarter: 2004Q4

REPORT INFORMATION
  Report Type: 
  Country: None (occurrence: None)
  Receive Date: 20041222
  Receipt Date: 20040517
  Transmission Date: 20050328
  Serious: No
  Sender: FDA-Public Use
  Company Number: US-BRISTOL-MYERS SQUIBB COMPANY-12589594

PATIENT
  Age: 78 Year
  Sex: Male
  Weight: 68 kg

DRUGS (4)
  1. PRAVACHOL [Suspect]
     Indication: BLOOD CHOLESTEROL INCREASED
     Dosage: DECREASED TO 3 TIMES A WEEK AFTER THE INITIAL EVENT
     Route: 048
  2. AVODART [Concomitant]
  3. ZETIA [Concomitant]
  4. LODRANE [Concomitant]

REACTIONS (1)
  - RASH PRURITIC [None]
